FAERS Safety Report 12073338 (Version 1)
Quarter: 2016Q1

REPORT INFORMATION
  Report Type: Spontaneous
  Country: US (occurrence: None)
  Receive Date: 20160211
  Receipt Date: 20160211
  Transmission Date: 20160526
  Serious: No
  Sender: FDA-Public Use
  Company Number: None

PATIENT
  Age: 35 Year
  Sex: Female
  Weight: 63.5 kg

DRUGS (2)
  1. PRENATAL VITAMINS [Concomitant]
     Active Substance: VITAMINS
  2. PRENATE MINI [Suspect]
     Active Substance: .ALPHA.-TOCOPHEROL, DL-\ASCORBIC ACID\BIOTIN\CALCIUM CARBONATE\CHOLECALCIFEROL\CYANOCOBALAMIN\DOCONEXENT\FOLIC ACID\IRON PENTACARBONYL\LOWBUSH BLUEBERRY\MAGNESIUM OXIDE\POTASSIUM IODIDE\PYRIDOXINE HYDROCHLORIDE
     Indication: PREGNANCY
     Dosage: 1 PILL, ONCE DAILY, TAKEN BY MOUTH
     Dates: start: 20160206, end: 20160206

REACTIONS (2)
  - Hypoaesthesia [None]
  - Ageusia [None]

NARRATIVE: CASE EVENT DATE: 20160206
